FAERS Safety Report 11804522 (Version 4)
Quarter: 2016Q1

REPORT INFORMATION
  Report Type: Report from Study
  Country: JP (occurrence: JP)
  Receive Date: 20151204
  Receipt Date: 20160308
  Transmission Date: 20160525
  Serious: Yes (Hospitalization)
  Sender: FDA-Public Use
  Company Number: PHJP2015JP021542

PATIENT
  Age: 22 Year
  Sex: Male
  Weight: 28 kg

DRUGS (9)
  1. PREDNISOLONE. [Concomitant]
     Active Substance: PREDNISOLONE
     Indication: CHRONIC INFANTILE NEUROLOGICAL CUTANEOUS AND ARTICULAR SYNDROME
     Dosage: 0.3 G, UNK
     Route: 048
     Dates: end: 20120612
  2. SELBEX [Concomitant]
     Active Substance: TEPRENONE
     Indication: CHRONIC INFANTILE NEUROLOGICAL CUTANEOUS AND ARTICULAR SYNDROME
     Dosage: 1 G, UNK
     Route: 048
  3. ALLEGRA [Concomitant]
     Active Substance: FEXOFENADINE HYDROCHLORIDE
     Indication: RHINITIS ALLERGIC
     Dosage: 60 MG, UNK
     Route: 048
  4. ACZ885 [Suspect]
     Active Substance: CANAKINUMAB
     Indication: CHRONIC INFANTILE NEUROLOGICAL CUTANEOUS AND ARTICULAR SYNDROME
     Dosage: 55.6 MG, UNK
     Route: 058
     Dates: start: 20120113
  5. ACZ885 [Suspect]
     Active Substance: CANAKINUMAB
     Dosage: 112 MG, UNK
     Route: 058
     Dates: start: 20120309
  6. ACZ885 [Suspect]
     Active Substance: CANAKINUMAB
     Dosage: 117 MG, UNK
     Route: 058
     Dates: start: 20120608
  7. ALFAROL [Concomitant]
     Active Substance: ALFACALCIDOL
     Indication: CHRONIC INFANTILE NEUROLOGICAL CUTANEOUS AND ARTICULAR SYNDROME
     Dosage: 1 ML, UNK
     Route: 048
  8. GASTER [Concomitant]
     Active Substance: FAMOTIDINE
     Indication: PROPHYLAXIS
     Dosage: 10 MG, UNK
     Route: 048
  9. ACZ885 [Suspect]
     Active Substance: CANAKINUMAB
     Dosage: 115 MG, UNK
     Route: 058
     Dates: start: 20120502

REACTIONS (1)
  - Malaise [Recovered/Resolved]

NARRATIVE: CASE EVENT DATE: 20151127
